FAERS Safety Report 11648752 (Version 1)
Quarter: 2015Q4

REPORT INFORMATION
  Report Type: Report from Study
  Country: US (occurrence: US)
  Receive Date: 20151021
  Receipt Date: 20151021
  Transmission Date: 20160304
  Serious: Yes (Other)
  Sender: FDA-Public Use
  Company Number: US-AMGEN-USASP2015108696

PATIENT
  Age: 55 Year
  Sex: Male

DRUGS (3)
  1. PREDNISONE. [Concomitant]
     Active Substance: PREDNISONE
     Dosage: UNK
  2. ENBREL [Suspect]
     Active Substance: ETANERCEPT
     Indication: AUTOINFLAMMATORY DISEASE
     Dosage: 50 MG, UNK
     Route: 065
     Dates: start: 20070101, end: 201311
  3. ENBREL [Suspect]
     Active Substance: ETANERCEPT
     Indication: AUTOIMMUNE DISORDER
     Dosage: UNK
     Route: 065
     Dates: start: 2014

REACTIONS (4)
  - Adrenal insufficiency [Unknown]
  - Fungal rhinitis [Unknown]
  - Frustration [Unknown]
  - Viral infection [Unknown]

NARRATIVE: CASE EVENT DATE: 201310
